FAERS Safety Report 8182058-X (Version None)
Quarter: 2012Q1

REPORT INFORMATION
  Report Type: 
  Country: None (occurrence: None)
  Receive Date: 20120302
  Receipt Date: 20120223
  Transmission Date: 20120608
  Serious: Yes (Other)
  Sender: FDA-Public Use
  Company Number: GB-MERCK-1202USA04091

PATIENT
  Age: 3 Year
  Sex: Female

DRUGS (3)
  1. DECADRON [Suspect]
     Indication: B PRECURSOR TYPE ACUTE LEUKAEMIA
     Route: 048
  2. ASPARAGINASE (AS DRUG) [Suspect]
     Indication: B PRECURSOR TYPE ACUTE LEUKAEMIA
     Route: 065
  3. VINCRISTINE SULFATE [Concomitant]
     Indication: B PRECURSOR TYPE ACUTE LEUKAEMIA
     Route: 042

REACTIONS (4)
  - HYPERTRIGLYCERIDAEMIA [None]
  - LETHARGY [None]
  - NEUROPATHY PERIPHERAL [None]
  - HYPONATRAEMIA [None]
